FAERS Safety Report 6218226-3 (Version None)
Quarter: 2009Q2

REPORT INFORMATION
  Report Type: 
  Country: None (occurrence: None)
  Receive Date: 20090604
  Receipt Date: 20090604
  Transmission Date: 20091009
  Serious: Yes (Other)
  Sender: FDA-Public Use
  Company Number: None

PATIENT
  Age: 56 Year
  Sex: Male
  Weight: 78.0187 kg

DRUGS (5)
  1. METOCLOPRAMIDE [Suspect]
     Indication: GASTROOESOPHAGEAL REFLUX DISEASE
     Dosage: 10 MG BID PO
     Route: 048
     Dates: start: 20070315, end: 20070801
  2. PREVACID [Concomitant]
  3. SYNTHROID [Concomitant]
  4. GABAPENTIN [Concomitant]
  5. VICODIN [Concomitant]

REACTIONS (7)
  - ANXIETY [None]
  - CLUMSINESS [None]
  - DEPRESSION [None]
  - FEELING JITTERY [None]
  - NERVOUSNESS [None]
  - PANIC DISORDER [None]
  - TREMOR [None]
